FAERS Safety Report 7103402-8 (Version None)
Quarter: 2010Q4

REPORT INFORMATION
  Report Type: 
  Country: None (occurrence: None)
  Receive Date: 20101115
  Receipt Date: 20101104
  Transmission Date: 20110411
  Serious: Yes (Hospitalization, Other)
  Sender: FDA-Public Use
  Company Number: FR-BAYER-201045458GPV

PATIENT
  Age: 73 Year
  Sex: Male
  Weight: 69 kg

DRUGS (16)
  1. CIFLOX [Suspect]
     Indication: LUNG DISORDER
     Dates: start: 20100617, end: 20100702
  2. ROCEPHIN [Suspect]
     Indication: LUNG DISORDER
     Dates: start: 20100617, end: 20100702
  3. LEVOTHYROXINE SODIUM [Concomitant]
     Indication: HYPOTHYROIDISM
  4. LEVOTHYROXINE SODIUM [Concomitant]
  5. HEMIGOXINE NATIVELLE [Concomitant]
     Indication: ATRIAL FIBRILLATION
  6. CORDARONE [Concomitant]
     Indication: ATRIAL FIBRILLATION
  7. SINTROM [Concomitant]
  8. OXYGEN [Concomitant]
     Indication: CHRONIC OBSTRUCTIVE PULMONARY DISEASE
     Dosage: UNDER OXYGEN AT HOME
  9. ADRENALINE [Concomitant]
  10. BETA ADRENERG BLOCKING AGENT [Concomitant]
  11. SERETIDE [Concomitant]
     Dosage: TOTAL DAILY DOSE: 2 DF
     Route: 055
  12. CARDENSIEL [Concomitant]
  13. UVEDOSE [Concomitant]
     Dosage: 1 AMPOULE/15 DAYS FOR 3 MONTHS
  14. MINISINTROM [Concomitant]
  15. VITAMIN B COMPLEX CAP [Concomitant]
     Dosage: TOTAL DAILY DOSE: 3 DF
  16. AMOXICILLIN [Concomitant]
     Dosage: TOTAL DAILY DOSE: 3 G

REACTIONS (8)
  - BRADYCARDIA [None]
  - CARDIO-RESPIRATORY ARREST [None]
  - ELECTROCARDIOGRAM QT PROLONGED [None]
  - HYPERKALAEMIA [None]
  - OVERDOSE [None]
  - RENAL FAILURE ACUTE [None]
  - TORSADE DE POINTES [None]
  - VENTRICULAR EXTRASYSTOLES [None]
